FAERS Safety Report 8819745 (Version 1)
Quarter: 2012Q4

REPORT INFORMATION
  Report Type: 
  Country: US (occurrence: US)
  Receive Date: 20121001
  Receipt Date: 20121001
  Transmission Date: 20130627
  Serious: Yes (Hospitalization, Other)
  Sender: FDA-Public Use
  Company Number: US-ROCHE-1129434

PATIENT
  Sex: Female

DRUGS (3)
  1. HERCEPTIN [Suspect]
     Indication: BREAST CANCER
     Dosage: loading dose
     Route: 065
     Dates: start: 20000803
  2. HERCEPTIN [Suspect]
     Indication: LUNG NEOPLASM MALIGNANT
     Dosage: maintainance dose
     Route: 065
  3. TAXOL [Concomitant]

REACTIONS (2)
  - Hip fracture [Unknown]
  - Metastases to bone [Unknown]
